FAERS Safety Report 8576084-6 (Version None)
Quarter: 2012Q3

REPORT INFORMATION
  Report Type: 
  Country: None (occurrence: None)
  Receive Date: 20120724
  Receipt Date: 20120711
  Transmission Date: 20120928
  Serious: Yes (Other)
  Sender: FDA-Public Use
  Company Number: AU-SEPTODONT-201200697

PATIENT
  Age: 43 Year
  Sex: Male

DRUGS (1)
  1. ARTICAINE HYDROCHLORIDE WITH EPINEPHRINE [Suspect]
     Indication: LOCAL ANAESTHESIA
     Dosage: CARTRIDGE DENTAL
     Route: 004

REACTIONS (8)
  - AGEUSIA [None]
  - DYSAESTHESIA [None]
  - INJECTION SITE PARAESTHESIA [None]
  - SPEECH DISORDER [None]
  - BURNING SENSATION [None]
  - DYSGEUSIA [None]
  - HYPOAESTHESIA [None]
  - EATING DISORDER [None]
